FAERS Safety Report 4611613-6 (Version None)
Quarter: 2005Q1

REPORT INFORMATION
  Report Type: 
  Country: None (occurrence: None)
  Receive Date: 20050317
  Receipt Date: 20050304
  Transmission Date: 20050727
  Serious: Yes (Other)
  Sender: FDA-Public Use
  Company Number: CA-ROCHE-397764

PATIENT
  Age: 84 Year
  Sex: Female

DRUGS (2)
  1. TAMIFLU [Suspect]
     Indication: PROPHYLAXIS
     Route: 048
     Dates: start: 20050203, end: 20050210
  2. COUMADIN [Concomitant]
     Dosage: DAILY DOSE INCREASED FROM 2.5 MG TO 3 MG ON 04 FEBRUARY 2005 AND DECREASED TO 2 MG ON 08 FEBRUARY 2+
     Route: 048

REACTIONS (1)
  - INTERNATIONAL NORMALISED RATIO INCREASED [None]
